FAERS Safety Report 9914224 (Version 2)
Quarter: 2014Q1

REPORT INFORMATION
  Report Type: Spontaneous
  Country: JP (occurrence: JP)
  Receive Date: 20140220
  Receipt Date: 20140220
  Transmission Date: 20141002
  Serious: Yes (Hospitalization)
  Sender: FDA-Public Use
  Company Number: JP-BAYER-2013-082366

PATIENT
  Age: 63 Year
  Sex: Female
  Weight: 58 kg

DRUGS (14)
  1. STIVARGA [Suspect]
     Indication: COLON CANCER
     Dosage: DAILY DOSE 160 MG (3 WEEKS ON AND 1 WEEK OFF)
     Route: 048
     Dates: start: 20130529, end: 20130619
  2. STIVARGA [Suspect]
     Indication: COLON CANCER
     Dosage: DAILY DOSE 120 MG (3 WEEKS ON AND 1 WEEK OFF)
     Route: 048
     Dates: start: 20130628, end: 20130703
  3. AMLODIPINE [Concomitant]
     Dosage: DAILY DOSE 2.5 MG
     Route: 048
     Dates: start: 2007
  4. TENORMIN [Concomitant]
     Dosage: DAILY DOSE 25 MG
     Route: 048
     Dates: start: 2007
  5. PLAVIX [Concomitant]
     Indication: PROPHYLAXIS
     Dosage: DAILY DOSE 25 MG
     Route: 048
     Dates: start: 20101117
  6. BAYASPIRIN [Concomitant]
     Indication: PROPHYLAXIS
     Dosage: DAILY DOSE 100 MG
     Route: 048
     Dates: start: 20120808
  7. CRESTOR [Concomitant]
     Dosage: DAILY DOSE 2.5 MG
     Route: 048
     Dates: start: 20121004
  8. PARIET [Concomitant]
     Indication: PROPHYLAXIS
     Dosage: DAILY DOSE 10 MG
     Route: 048
     Dates: start: 20121213
  9. MAGMITT [Concomitant]
     Indication: CONSTIPATION
     Dosage: DAILY DOSE 990 MG
     Route: 048
     Dates: start: 20120817
  10. GASMOTIN [Concomitant]
     Indication: CONSTIPATION
     Dosage: DAILY DOSE 15 MG
     Route: 048
     Dates: start: 20100329
  11. BIOFERMIN [Concomitant]
     Dosage: DAILY DOSE 36 MG
     Route: 048
  12. UREPEARL [Concomitant]
     Indication: DRUG TOXICITY PROPHYLAXIS
     Dosage: UNK
     Route: 061
  13. METININ [Concomitant]
     Dosage: DAILY DOSE 25 MG
     Route: 048
  14. JUVELA N [Concomitant]
     Dosage: DAILY DOSE 400 MG
     Route: 048

REACTIONS (11)
  - Aspartate aminotransferase increased [Recovered/Resolved]
  - Blood alkaline phosphatase increased [Recovered/Resolved]
  - Blood bilirubin increased [Recovered/Resolved]
  - White blood cell count decreased [Recovered/Resolved]
  - Anaemia [Recovered/Resolved]
  - Dysphonia [Recovered/Resolved]
  - Palmar-plantar erythrodysaesthesia syndrome [Recovered/Resolved]
  - Stomatitis [Recovered/Resolved]
  - Oral herpes [Recovered/Resolved]
  - Ophthalmic herpes simplex [Recovered/Resolved]
  - Alanine aminotransferase increased [Recovered/Resolved]
